FAERS Safety Report 15042337 (Version 2)
Quarter: 2018Q2

REPORT INFORMATION
  Report Type: Spontaneous
  Country: DE (occurrence: DE)
  Receive Date: 20180621
  Receipt Date: 20180621
  Transmission Date: 20180711
  Serious: Yes (Hospitalization, Other)
  Sender: FDA-Public Use
  Company Number: PHHY2016DE186897

PATIENT
  Sex: Male

DRUGS (35)
  1. PEGFILGRASTIM [Suspect]
     Active Substance: PEGFILGRASTIM
     Dosage: DAY 4 FOR 1 DAY
     Route: 058
     Dates: start: 20151219, end: 20151219
  2. ACICLOVIR [Concomitant]
     Active Substance: ACYCLOVIR
     Indication: INFECTION PROPHYLAXIS
     Dosage: 400 MG, TID
     Route: 048
     Dates: start: 20151204
  3. CIPROFLOXACIN. [Concomitant]
     Active Substance: CIPROFLOXACIN
     Indication: INFECTION PROPHYLAXIS
     Dosage: 2 OT, QD (BID (D6-12 POST CHEMO (2 IN 1 D))
     Route: 048
     Dates: start: 20151208
  4. BISOPROLOL [Concomitant]
     Active Substance: BISOPROLOL
     Indication: HYPERTENSION
     Dosage: UNK
     Route: 065
  5. CYCLOPHOSPHAMIDE. [Suspect]
     Active Substance: CYCLOPHOSPHAMIDE
     Dosage: 1 OT, Q2W
     Route: 042
     Dates: start: 20160210
  6. PREDNISOLONE. [Suspect]
     Active Substance: PREDNISOLONE
     Dosage: UNK (ON DAY 2 AND 6 FOR 5 DAYS)
     Route: 048
     Dates: start: 20160210
  7. VINCRISTINE [Suspect]
     Active Substance: VINCRISTINE
     Indication: B-CELL LYMPHOMA
     Dosage: 1 OT, Q2W (1 IN 14 D)
     Route: 042
     Dates: start: 20151202, end: 20151202
  8. VINCRISTINE [Suspect]
     Active Substance: VINCRISTINE
     Dosage: 1 OT, Q2W (EVERY 14 DAY FOR 1 DAY)
     Route: 042
     Dates: start: 20151216
  9. DOXORUBICIN [Suspect]
     Active Substance: DOXORUBICIN
     Dosage: 1 OT, Q2W
     Route: 042
     Dates: start: 20151216
  10. BISOPROLOL [Concomitant]
     Active Substance: BISOPROLOL
     Indication: HYPERTONIA
     Dosage: 2.5 MG, BID
     Route: 048
  11. COLECALCIFEROL [Concomitant]
     Active Substance: CHOLECALCIFEROL
     Indication: VITAMIN SUPPLEMENTATION
     Dosage: 20000 IU, QW
     Route: 048
     Dates: start: 20151202
  12. PREDNISOLONE. [Suspect]
     Active Substance: PREDNISOLONE
     Dosage: DAY 2-6 FOR 5 DAYS
     Route: 048
     Dates: start: 20151215, end: 20151219
  13. PREDNISOLONE. [Suspect]
     Active Substance: PREDNISOLONE
     Dosage: UNK (ON DAY 2 AND 6 FOR 5 DAYS)
     Route: 048
     Dates: start: 20160214
  14. RITUXIMAB. [Suspect]
     Active Substance: RITUXIMAB
     Dosage: 375 MG/M2, Q2W
     Route: 042
     Dates: start: 20160210
  15. PEGFILGRASTIM [Suspect]
     Active Substance: PEGFILGRASTIM
     Indication: B-CELL LYMPHOMA
     Dosage: D4 OF EVERY 14 DAYS
     Route: 058
     Dates: start: 20151204, end: 20151204
  16. COTRIM FORTE [Concomitant]
     Active Substance: SULFAMETHOXAZOLE\TRIMETHOPRIM
     Indication: INFECTION PROPHYLAXIS
     Dosage: 960 MG, BIW
     Route: 048
     Dates: start: 20151205
  17. OXYCODON HCL AL [Concomitant]
     Indication: PAIN
     Dosage: 10 MG, BID
     Route: 048
  18. PANTOPRAZOL [Concomitant]
     Active Substance: PANTOPRAZOLE SODIUM
     Indication: PRODUCT USED FOR UNKNOWN INDICATION
     Dosage: 40 MG, QD
     Route: 048
  19. SULFAMETHOXAZOLE W/TRIMETHOPRIM [Concomitant]
     Active Substance: SULFAMETHOXAZOLE\TRIMETHOPRIM
     Indication: INFECTION PROPHYLAXIS
     Dosage: 960 MG, BIW
     Route: 048
     Dates: start: 20151212
  20. CYCLOPHOSPHAMIDE. [Suspect]
     Active Substance: CYCLOPHOSPHAMIDE
     Dosage: 1 OT, Q2W
     Route: 042
     Dates: start: 20151202, end: 20151202
  21. CYCLOPHOSPHAMIDE. [Suspect]
     Active Substance: CYCLOPHOSPHAMIDE
     Dosage: EVERY 1 4 DAY FOR 1 DAY
     Route: 042
     Dates: start: 20151216
  22. RITUXIMAB. [Suspect]
     Active Substance: RITUXIMAB
     Indication: B-CELL LYMPHOMA
     Dosage: 375 MG/M2, Q2W
     Route: 042
     Dates: start: 20151201
  23. CYCLOPHOSPHAMIDE. [Suspect]
     Active Substance: CYCLOPHOSPHAMIDE
     Indication: B-CELL LYMPHOMA
     Dosage: EVERY 1 4 DAY FOR 1 DAY
     Route: 042
  24. PREDNISOLONE. [Suspect]
     Active Substance: PREDNISOLONE
     Indication: B-CELL LYMPHOMA
     Dosage: 100 MG, UNK (D 2-6 FOR 5 DAYS)
     Route: 048
     Dates: start: 20151202, end: 20151206
  25. RITUXIMAB. [Suspect]
     Active Substance: RITUXIMAB
     Dosage: 750 MG, Q2W
     Route: 042
     Dates: start: 20151215, end: 20151215
  26. VINCRISTINE [Suspect]
     Active Substance: VINCRISTINE
     Dosage: 1 OT, Q2W  (1 IN 14 D)
     Route: 042
     Dates: start: 20160210
  27. DOXORUBICIN [Suspect]
     Active Substance: DOXORUBICIN
     Indication: B-CELL LYMPHOMA
     Dosage: 50 MG/M2, Q2W
     Route: 042
     Dates: start: 20151202, end: 20151202
  28. PEGFILGRASTIM [Suspect]
     Active Substance: PEGFILGRASTIM
     Dosage: 1 OT, QD
     Route: 058
     Dates: start: 20160215
  29. CLEXANE [Concomitant]
     Active Substance: ENOXAPARIN SODIUM
     Dosage: 0.8 ML, UNK
  30. LEVODOPA [Concomitant]
     Active Substance: LEVODOPA
     Indication: RESTLESS LEGS SYNDROME
     Dosage: 100/25 MG (1/2 EVERY 2 BDAY)
     Route: 048
  31. CARBIDOPA W/LEVODOPA [Concomitant]
     Active Substance: CARBIDOPA\LEVODOPA
     Indication: RESTLESS LEGS SYNDROME
     Dosage: 100/125, 1/2 TAB EVERY SECOND DAY)
     Route: 048
  32. ENOXAPARIN SODIUM. [Concomitant]
     Active Substance: ENOXAPARIN SODIUM
     Dosage: 8 ML, BID
     Route: 058
     Dates: start: 20160318
  33. ENOXAPARIN SODIUM. [Concomitant]
     Active Substance: ENOXAPARIN SODIUM
     Indication: PRODUCT USED FOR UNKNOWN INDICATION
     Dosage: 8 ML, BID
     Route: 058
     Dates: start: 20151023
  34. DOXORUBICIN [Suspect]
     Active Substance: DOXORUBICIN
     Dosage: 1 OT, Q2W
     Route: 042
     Dates: start: 20160210
  35. ENALAPRIL MALEATE. [Concomitant]
     Active Substance: ENALAPRIL MALEATE
     Indication: HYPERTONIA
     Dosage: 2.5 MG, BID
     Route: 048

REACTIONS (8)
  - Erysipelas [Recovered/Resolved]
  - Dyspnoea [Recovered/Resolved]
  - Phlebitis infective [Unknown]
  - White blood cell count decreased [Recovered/Resolved]
  - Syncope [Recovered/Resolved]
  - Atrial fibrillation [Recovered/Resolved]
  - Device related infection [Unknown]
  - Neutrophil count decreased [Unknown]

NARRATIVE: CASE EVENT DATE: 20151208
